FAERS Safety Report 18166357 (Version 1)
Quarter: 2020Q3

REPORT INFORMATION
  Report Type: Report from Study
  Country: None (occurrence: US)
  Receive Date: 20200819
  Receipt Date: 20200819
  Transmission Date: 20201103
  Serious: Yes (Other)
  Sender: FDA-Public Use
  Company Number: US-ABBVIE-20K-163-3482709-00

PATIENT
  Age: 87 Year
  Sex: Male

DRUGS (1)
  1. HUMIRA [Suspect]
     Active Substance: ADALIMUMAB
     Indication: PSORIASIS
     Dosage: CITRATE FREE
     Route: 058

REACTIONS (7)
  - Skin reaction [Unknown]
  - Pulmonary oedema [Unknown]
  - Gastric disorder [Unknown]
  - Abdominal pain lower [Unknown]
  - Prostatomegaly [Unknown]
  - Pruritus [Unknown]
  - Flatulence [Unknown]

NARRATIVE: CASE EVENT DATE: 201912
